FAERS Safety Report 11319780 (Version 2)
Quarter: 2015Q3

REPORT INFORMATION
  Report Type: Not Available
  Country: FR (occurrence: FR)
  Receive Date: 20150729
  Receipt Date: 20150820
  Transmission Date: 20151125
  Serious: Yes (Other)
  Sender: FDA-Public Use
  Company Number: FR-BEH-2015052576

PATIENT
  Age: 24 Hour
  Sex: Female

DRUGS (1)
  1. BERINERT [Suspect]
     Active Substance: HUMAN C1-ESTERASE INHIBITOR

REACTIONS (2)
  - Myoclonus [Not Recovered/Not Resolved]
  - Foetal exposure during delivery [Unknown]

NARRATIVE: CASE EVENT DATE: 20150629
